FAERS Safety Report 11288950 (Version 2)
Quarter: 2015Q3

REPORT INFORMATION
  Report Type: Report from Study
  Country: BG (occurrence: BG)
  Receive Date: 20150721
  Receipt Date: 20150803
  Transmission Date: 20151125
  Serious: Yes (Death)
  Sender: FDA-Public Use
  Company Number: BG-TOLMAR, INC.-2015BG006484

PATIENT

DRUGS (4)
  1. ROSUCARD [Concomitant]
  2. ELIGARD [Suspect]
     Active Substance: LEUPROLIDE ACETATE
     Indication: PROSTATE CANCER
     Dosage: UNK
     Route: 058
     Dates: start: 20150404, end: 20150612
  3. PREDUCTAL                          /00489601/ [Concomitant]
  4. NORVASC [Concomitant]
     Active Substance: AMLODIPINE BESYLATE

REACTIONS (2)
  - Cardiac failure [Fatal]
  - Respiratory failure [Fatal]
